FAERS Safety Report 11874563 (Version 2)
Quarter: 2019Q1

REPORT INFORMATION
  Report Type: Report from Study
  Country: DE (occurrence: DE)
  Receive Date: 20151229
  Receipt Date: 20190128
  Transmission Date: 20190417
  Serious: Yes (Other)
  Sender: FDA-Public Use
  Company Number: PHHO2014DE007953

PATIENT
  Age: 37 Year
  Sex: Male
  Weight: 109.7 kg

DRUGS (3)
  1. METHOTREXATE. [Concomitant]
     Active Substance: METHOTREXATE
     Dosage: 25 MG, QW
     Route: 065
     Dates: start: 201503
  2. AIN457 [Suspect]
     Active Substance: SECUKINUMAB
     Indication: NAIL PSORIASIS
     Dosage: 150 MG, UNK
     Route: 058
     Dates: start: 20140220, end: 20140521
  3. METHOTREXATE. [Concomitant]
     Active Substance: METHOTREXATE
     Indication: PSORIASIS
     Dosage: UNK
     Route: 065
     Dates: start: 201509

REACTIONS (2)
  - Neutropenia [Recovering/Resolving]
  - Immune thrombocytopenic purpura [Unknown]

NARRATIVE: CASE EVENT DATE: 20140521
